FAERS Safety Report 15307497 (Version 1)
Quarter: 2018Q3

REPORT INFORMATION
  Report Type: Spontaneous
  Country: US (occurrence: US)
  Receive Date: 20180822
  Receipt Date: 20180822
  Transmission Date: 20181010
  Serious: No
  Sender: FDA-Public Use
  Company Number: US-BIOCOMPATIBLES UK LTD-2018BTG01657

PATIENT
  Age: 17 Year
  Sex: Male

DRUGS (1)
  1. VARITHENA [Suspect]
     Active Substance: POLIDOCANOL
     Indication: MALFORMATION VENOUS
     Dosage: 15 CC, SINGLE
     Route: 065
     Dates: start: 20180410, end: 20180410

REACTIONS (4)
  - Burning sensation [Recovered/Resolved]
  - Swelling [Not Recovered/Not Resolved]
  - Drug administered to patient of inappropriate age [Unknown]
  - Off label use [Unknown]

NARRATIVE: CASE EVENT DATE: 20180410
